FAERS Safety Report 9718961 (Version 2)
Quarter: 2013Q4

REPORT INFORMATION
  Report Type: Spontaneous
  Country: AU (occurrence: AU)
  Receive Date: 20131127
  Receipt Date: 20131227
  Transmission Date: 20140711
  Serious: Yes (Other)
  Sender: FDA-Public Use
  Company Number: AU-009507513-1311AUS009330

PATIENT
  Age: 30 Year
  Sex: Female

DRUGS (1)
  1. IMPLANON [Suspect]
     Dosage: UNK
     Dates: start: 2008

REACTIONS (4)
  - Abortion induced [Unknown]
  - Medication error [Unknown]
  - Exposure during pregnancy [Recovered/Resolved]
  - Unintended pregnancy [Unknown]
